FAERS Safety Report 4885054-0 (Version None)
Quarter: 2006Q1

REPORT INFORMATION
  Report Type: 
  Country: None (occurrence: None)
  Receive Date: 20060119
  Receipt Date: 20050406
  Transmission Date: 20060701
  Serious: Yes (Hospitalization)
  Sender: FDA-Public Use
  Company Number: US-MERCK-0504USA01027

PATIENT
  Age: 47 Year
  Sex: Female
  Weight: 65 kg

DRUGS (8)
  1. VIOXX [Suspect]
     Indication: ARTHRALGIA
     Route: 048
     Dates: start: 20000101, end: 20020101
  2. ECOTRIN [Concomitant]
     Route: 065
  3. NORVASC [Concomitant]
     Route: 065
  4. PAXIL [Concomitant]
     Route: 065
  5. TEMAZEPAM [Concomitant]
     Route: 065
  6. PREMPRO [Concomitant]
     Route: 065
  7. ANTIVERT [Concomitant]
     Route: 065
  8. PREVACID [Concomitant]
     Route: 065

REACTIONS (23)
  - ABDOMINAL WALL CYST [None]
  - ABSCESS [None]
  - ANAEMIA [None]
  - ANTIPHOSPHOLIPID ANTIBODIES [None]
  - ARTERIOSCLEROSIS [None]
  - CEREBROVASCULAR ACCIDENT [None]
  - CORONARY ARTERY DISEASE [None]
  - FALL [None]
  - GASTROENTERITIS [None]
  - GASTROOESOPHAGEAL REFLUX DISEASE [None]
  - HYPERLIPIDAEMIA [None]
  - HYPERTENSION [None]
  - ILEUS [None]
  - JOINT INJURY [None]
  - JOINT SPRAIN [None]
  - NEUROPATHY [None]
  - RENAL FAILURE ACUTE [None]
  - SYSTEMIC LUPUS ERYTHEMATOSUS [None]
  - THROMBOCYTHAEMIA [None]
  - URINARY TRACT INFECTION [None]
  - VASCULAR PSEUDOANEURYSM [None]
  - VENTRICULAR HYPERTROPHY [None]
  - VERTEBRAL ARTERY THROMBOSIS [None]
